FAERS Safety Report 8532706-7 (Version None)
Quarter: 2012Q3

REPORT INFORMATION
  Report Type: 
  Country: None (occurrence: None)
  Receive Date: 20120724
  Receipt Date: 20120719
  Transmission Date: 20120928
  Serious: Yes (Death, Hospitalization)
  Sender: FDA-Public Use
  Company Number: PHHY2012BR049966

PATIENT
  Sex: Male

DRUGS (1)
  1. TRILEPTAL [Suspect]
     Indication: CONVULSION
     Dosage: 2 OR 3 TABS PER DAY

REACTIONS (3)
  - DEATH [None]
  - PNEUMONIA ASPIRATION [None]
  - NOSOCOMIAL INFECTION [None]
